FAERS Safety Report 8326294-8 (Version None)
Quarter: 2012Q1

REPORT INFORMATION
  Report Type: 
  Country: None (occurrence: None)
  Receive Date: 20120315
  Receipt Date: 20110222
  Transmission Date: 20120608
  Serious: No
  Sender: FDA-Public Use
  Company Number: PHHY2011US16491

PATIENT
  Age: 35 Year
  Sex: Female

DRUGS (5)
  1. PERCOCET [Concomitant]
  2. VALIUM [Concomitant]
  3. GILENYA [Suspect]
     Dosage: 0.5 MG, QD, ORAL
     Route: 048
     Dates: start: 20110222, end: 20110222
  4. GABAPENTIN [Concomitant]
  5. MILK OF MAGNESIA TAB [Concomitant]

REACTIONS (2)
  - SOMNOLENCE [None]
  - FATIGUE [None]
